FAERS Safety Report 10275066 (Version 2)
Quarter: 2014Q3

REPORT INFORMATION
  Report Type: Spontaneous
  Country: JP (occurrence: JP)
  Receive Date: 20140703
  Receipt Date: 20140704
  Transmission Date: 20150326
  Serious: Yes (Other)
  Sender: FDA-Public Use
  Company Number: JP-009507513-1406JPN012517

PATIENT

DRUGS (2)
  1. STROMECTOL [Suspect]
     Active Substance: IVERMECTIN
     Indication: ACARODERMATITIS
     Dosage: THE SECOND TIME OR THE THIRD TIME, DAILY DOSAGE UNKNOWN
     Route: 048
  2. STROMECTOL [Suspect]
     Active Substance: IVERMECTIN
     Dosage: THE FIRST TIME, DAILY DOSAGE UNKNOWN
     Route: 048

REACTIONS (2)
  - Respiratory failure [Unknown]
  - Pharyngeal oedema [Unknown]
